FAERS Safety Report 14576121 (Version 3)
Quarter: 2018Q1

REPORT INFORMATION
  Report Type: Spontaneous
  Country: US (occurrence: US)
  Receive Date: 20180227
  Receipt Date: 20180315
  Transmission Date: 20180509
  Serious: Yes (Hospitalization)
  Sender: FDA-Public Use
  Company Number: US-UNITED THERAPEUTICS-UNT-2018-001928

PATIENT
  Age: 56 Year
  Sex: Female
  Weight: 52.15 kg

DRUGS (6)
  1. REMODULIN [Suspect]
     Active Substance: TREPROSTINIL
     Dosage: 0.003 ?G/KG, CONTINUING
     Route: 041
  2. REMODULIN [Suspect]
     Active Substance: TREPROSTINIL
     Indication: PULMONARY ARTERIAL HYPERTENSION
     Dosage: 0.00275 ?G/KG, CONTINUING
     Route: 041
     Dates: start: 20180209
  3. REMODULIN [Suspect]
     Active Substance: TREPROSTINIL
     Dosage: 0.00275 ?G/KG, CONTINUING
     Route: 041
  4. LETAIRIS [Concomitant]
     Active Substance: AMBRISENTAN
     Indication: PRODUCT USED FOR UNKNOWN INDICATION
     Route: 065
  5. REMODULIN [Suspect]
     Active Substance: TREPROSTINIL
     Indication: PULMONARY HYPERTENSION
     Dosage: 0.0042 ?G/KG, CONTINUING
     Route: 041
  6. REVATIO [Concomitant]
     Active Substance: SILDENAFIL CITRATE
     Indication: PRODUCT USED FOR UNKNOWN INDICATION
     Route: 065

REACTIONS (8)
  - Blood sodium decreased [Unknown]
  - Thrombosis [Unknown]
  - Headache [Unknown]
  - Nausea [Unknown]
  - Syncope [Unknown]
  - Fatigue [Unknown]
  - Diplacusis [Unknown]
  - Wrong technique in product usage process [Unknown]

NARRATIVE: CASE EVENT DATE: 201802
